FAERS Safety Report 12979004 (Version 1)
Quarter: 2016Q4

REPORT INFORMATION
  Report Type: Spontaneous
  Country: US (occurrence: US)
  Receive Date: 20161125
  Receipt Date: 20161125
  Transmission Date: 20170207
  Serious: No
  Sender: FDA-Public Use
  Company Number: None

PATIENT
  Age: 59 Year
  Sex: Male

DRUGS (2)
  1. BOTOX [Suspect]
     Active Substance: ONABOTULINUMTOXINA
     Indication: MIGRAINE WITHOUT AURA
     Dosage: 200 UNITS EVERY 3 MONTHS INTRAMUSCULARLY
     Route: 030
     Dates: start: 20160525
  2. BOTOX [Suspect]
     Active Substance: ONABOTULINUMTOXINA
     Indication: STATUS MIGRAINOSUS
     Dosage: 200 UNITS EVERY 3 MONTHS INTRAMUSCULARLY
     Route: 030
     Dates: start: 20160525

REACTIONS (1)
  - Hypersensitivity [None]
